FAERS Safety Report 4596384-4 (Version None)
Quarter: 2005Q1

REPORT INFORMATION
  Report Type: 
  Country: None (occurrence: None)
  Receive Date: 20050228
  Receipt Date: 20050218
  Transmission Date: 20050727
  Serious: Yes (Hospitalization)
  Sender: FDA-Public Use
  Company Number: 2005034599

PATIENT
  Age: 64 Year
  Sex: Male
  Weight: 63 kg

DRUGS (5)
  1. ZITHROMAX [Suspect]
     Indication: ILL-DEFINED DISORDER
     Dosage: 500 MG (500 MG, 1 IN 1 D); ORAL
     Route: 048
     Dates: start: 20030128, end: 20030101
  2. SIMVASTATIN [Concomitant]
  3. ENALAPRIL [Concomitant]
  4. ALLOPURINOL [Concomitant]
  5. TIROPRAMIDE [Concomitant]

REACTIONS (1)
  - FACE OEDEMA [None]
